FAERS Safety Report 23226635 (Version 1)
Quarter: 2023Q4

REPORT INFORMATION
  Report Type: Spontaneous
  Country: US (occurrence: US)
  Receive Date: 20231124
  Receipt Date: 20231124
  Transmission Date: 20240110
  Serious: Yes (Death, Other)
  Sender: FDA-Public Use
  Company Number: US-ALEMBIC PHARMACUETICALS LIMITED-2023SCAL001115

PATIENT

DRUGS (2)
  1. DOCETAXEL [Suspect]
     Active Substance: DOCETAXEL\DOCETAXEL ANHYDROUS
     Indication: Transitional cell carcinoma
     Dosage: 37.5 MG DOCETAXEL IN A 50 ML SALINE BAG
     Route: 065
  2. GEMCITABINE [Suspect]
     Active Substance: GEMCITABINE
     Indication: Transitional cell carcinoma
     Dosage: 1G GEMCITABINE IN A 50 ML BAG OF NORMAL SALINE
     Route: 065

REACTIONS (3)
  - Pyelonephritis [Fatal]
  - Septic shock [Fatal]
  - Bacteraemia [Fatal]
